FAERS Safety Report 13402152 (Version 14)
Quarter: 2018Q4

REPORT INFORMATION
  Report Type: Spontaneous
  Country: NO (occurrence: NO)
  Receive Date: 20170404
  Receipt Date: 20181224
  Transmission Date: 20190204
  Serious: Yes (Life-Threatening, Other)
  Sender: FDA-Public Use
  Company Number: NO-PFIZER INC-2017143623

PATIENT
  Age: 56 Year
  Sex: Female

DRUGS (22)
  1. ISOFLURAN BAXTER [Suspect]
     Active Substance: ISOFLURANE
     Indication: STATUS ASTHMATICUS
     Dosage: 1-1.4 MAC.
     Route: 055
     Dates: start: 20170301
  2. ATROVENT [Suspect]
     Active Substance: IPRATROPIUM BROMIDE
     Dosage: UNK
     Dates: start: 20170301
  3. ISOFLURAN BAXTER V?SKE TIL INHALASJONSDAMP [Concomitant]
     Active Substance: ISOFLURANE
     Dosage: GRADUALLY TAPPERED OFF
     Route: 055
  4. AMLODIPINE [Concomitant]
     Active Substance: AMLODIPINE BESYLATE
     Dosage: 5 MG, 1X/DAY
  5. RAPIFEN [Suspect]
     Active Substance: ALFENTANIL HYDROCHLORIDE
     Dosage: UNK
     Dates: start: 20170301
  6. PREDNISOLON [Concomitant]
     Active Substance: PREDNISOLONE
     Dosage: 20 MG, ALTERNATE DAY
  7. ISOFLURAN BAXTER V?SKE TIL INHALASJONSDAMP [Concomitant]
     Active Substance: ISOFLURANE
     Indication: STATUS ASTHMATICUS
     Dosage: DOSE WAS REDUCED TO 1.1 MAC
     Route: 055
  8. KIOVIG [Suspect]
     Active Substance: HUMAN IMMUNOGLOBULIN G
     Indication: MYASTHENIA GRAVIS
     Dosage: 120 G (2G/KG) OVER 5 DAYS
     Dates: start: 20170301, end: 20170306
  9. MESTINON [Suspect]
     Active Substance: PYRIDOSTIGMINE BROMIDE
     Dosage: 60 MG, FIVE TIMES A DAY (4-5 TABLETS PER DAY)
     Dates: end: 20170301
  10. SOMAC [Concomitant]
     Active Substance: PANTOPRAZOLE SODIUM
     Dosage: 40 MG, 1X/DAY
  11. PREDNISOLON [Concomitant]
     Active Substance: PREDNISOLONE
     Dosage: 40 MG, 1X/DAY
  12. AMLODIPINE BESILATE [Suspect]
     Active Substance: AMLODIPINE BESYLATE
     Dosage: 5 MG, 1X/DAY
  13. VENTOLINE [Suspect]
     Active Substance: ALBUTEROL
     Dosage: UNK
     Dates: start: 20170301
  14. ESTRADIOL VALERATE. [Concomitant]
     Active Substance: ESTRADIOL VALERATE
  15. PROPOFOL. [Suspect]
     Active Substance: PROPOFOL
     Dosage: UNK
     Dates: start: 20170301
  16. ISOFLURAN BAXTER [Suspect]
     Active Substance: ISOFLURANE
     Dosage: DOSE WAS REDUCED TO 1.1 MAC
     Route: 055
     Dates: start: 20170304, end: 20170304
  17. ISOFLURAN BAXTER [Suspect]
     Active Substance: ISOFLURANE
     Dosage: GRADUALLY TAPPERED OFF
     Route: 055
     Dates: start: 20170304, end: 20170306
  18. PROGYNOVA [Concomitant]
     Active Substance: ESTRADIOL VALERATE
     Dosage: 2 MG, 1X/DAY
  19. SOLU-CORTEF [Suspect]
     Active Substance: HYDROCORTISONE SODIUM SUCCINATE
     Dosage: UNK
     Dates: start: 20170301
  20. KETAMINE [Concomitant]
     Active Substance: KETAMINE
     Dosage: UNK
  21. ISOFLURAN BAXTER V?SKE TIL INHALASJONSDAMP [Concomitant]
     Active Substance: ISOFLURANE
     Dosage: 1-1.4 MAC.
     Route: 055
  22. PANTOPRAZOLE SODIUM. [Concomitant]
     Active Substance: PANTOPRAZOLE SODIUM

REACTIONS (1)
  - Hyperkalaemia [Recovering/Resolving]

NARRATIVE: CASE EVENT DATE: 20170302
